FAERS Safety Report 18563873 (Version 4)
Quarter: 2021Q1

REPORT INFORMATION
  Report Type: Report from Study
  Country: MX (occurrence: MX)
  Receive Date: 20201201
  Receipt Date: 20210127
  Transmission Date: 20210419
  Serious: Yes (Other)
  Sender: FDA-Public Use
  Company Number: NVSC2020MX316915

PATIENT
  Age: 61 Year
  Sex: Female
  Weight: 64 kg

DRUGS (7)
  1. GALVUS MET [Suspect]
     Active Substance: METFORMIN HYDROCHLORIDE\VILDAGLIPTIN
     Indication: DIABETES MELLITUS
     Dosage: 1 DF, TID(1 TABLET AT BREAKFAST, 1 TABLET AT THE MEAL AND 0.5 TABLET AT DINNER), STARTED AROUND 8 YE
     Route: 048
     Dates: start: 2008, end: 20210105
  2. CO?DIOVAN [Suspect]
     Active Substance: HYDROCHLOROTHIAZIDE\VALSARTAN
     Indication: HYPERTENSION
     Dosage: 1, QD 6 YEARS AGO
     Route: 048
  3. TELMISARTAN. [Concomitant]
     Active Substance: TELMISARTAN
     Indication: HYPERTENSION
     Dosage: 40 MG, QD
     Route: 048
     Dates: start: 202008
  4. GALVUS MET [Suspect]
     Active Substance: METFORMIN HYDROCHLORIDE\VILDAGLIPTIN
     Dosage: 1 DF (AT BREAKFAST , AT MEAL)
     Route: 048
     Dates: start: 20210106
  5. LOSARTAN AND HYDROCHLOROTHIAZIDE [Concomitant]
     Active Substance: HYDROCHLOROTHIAZIDE\LOSARTAN POTASSIUM
     Indication: HYPERTENSION
     Dosage: (50/12.5 MG) IN THE MORNING AND THE AFTERNOON
     Route: 048
     Dates: end: 202008
  6. AMLODIPINE [Concomitant]
     Active Substance: AMLODIPINE BESYLATE
     Indication: HYPERTENSION
     Dosage: 5 MG, Q12H
     Route: 048
     Dates: start: 20210106
  7. METOPROLOL. [Concomitant]
     Active Substance: METOPROLOL
     Indication: HYPERTENSION
     Dosage: 100 MG (0.5), Q12H
     Route: 048
     Dates: start: 20210106

REACTIONS (9)
  - Peripheral swelling [Not Recovered/Not Resolved]
  - Balance disorder [Recovered/Resolved]
  - Anaemia [Unknown]
  - Product prescribing issue [Unknown]
  - Cardiomegaly [Unknown]
  - Tinnitus [Recovered/Resolved]
  - Off label use [Unknown]
  - Malabsorption [Recovered/Resolved]
  - Renal failure [Unknown]

NARRATIVE: CASE EVENT DATE: 202007
